FAERS Safety Report 24443971 (Version 1)
Quarter: 2024Q4

REPORT INFORMATION
  Report Type: Report from Study
  Country: JP (occurrence: JP)
  Receive Date: 20241016
  Receipt Date: 20241016
  Transmission Date: 20250115
  Serious: Yes (Hospitalization, Other)
  Sender: ALEXION PHARMACEUTICALS
  Company Number: JP-AstraZeneca-CH-00621715A

PATIENT
  Age: 73 Year
  Weight: 58.2 kg

DRUGS (1)
  1. KANUMA [Suspect]
     Active Substance: SEBELIPASE ALFA
     Indication: Lysosomal acid lipase deficiency
     Dosage: 3 MILLIGRAM/KILOGRAM, Q2W

REACTIONS (4)
  - Lysosomal acid lipase deficiency [Unknown]
  - Condition aggravated [Unknown]
  - Hepatic encephalopathy [Recovering/Resolving]
  - Ascites [Recovered/Resolved]
